FAERS Safety Report 21410532 (Version 1)
Quarter: 2022Q4

REPORT INFORMATION
  Report Type: Spontaneous
  Country: US (occurrence: None)
  Receive Date: 20221003
  Receipt Date: 20221003
  Transmission Date: 20230113
  Serious: Yes (Hospitalization)
  Sender: FDA-Public Use
  Company Number: None

PATIENT
  Sex: Female

DRUGS (2)
  1. NINLARO [Suspect]
     Active Substance: IXAZOMIB CITRATE
     Indication: Plasma cell myeloma
     Dosage: OTHER FREQUENCY : DAY 1,8,15 Q 28 D;?
     Route: 048
     Dates: start: 202207
  2. CYCLOPHOSPHAMIDE [Suspect]
     Active Substance: CYCLOPHOSPHAMIDE
     Indication: Plasma cell myeloma
     Dosage: OTHER FREQUENCY : DAY 1,8,15 Q 28 D;?
     Route: 048
     Dates: start: 202207

REACTIONS (5)
  - Hyponatraemia [None]
  - Hypotension [None]
  - Malaise [None]
  - Gastrointestinal disorder [None]
  - Therapy interrupted [None]
